FAERS Safety Report 4524536-8 (Version None)
Quarter: 2004Q4

REPORT INFORMATION
  Report Type: 
  Country: None (occurrence: None)
  Receive Date: 20041117
  Receipt Date: 20040204
  Transmission Date: 20050328
  Serious: Yes (Other)
  Sender: FDA-Public Use
  Company Number: US-JNJFOC-20040104554

PATIENT
  Age: 45 Year
  Sex: Male
  Weight: 105.2345 kg

DRUGS (4)
  1. LEVAQUIN [Suspect]
     Indication: PNEUMONIA
     Dosage: 500 MG, 1 IN 1 DAY, ORAL
     Route: 048
     Dates: start: 20031223, end: 20040101
  2. MOTRIN [Concomitant]
  3. ZOLOFT [Concomitant]
  4. ZANAX (ALPRAZOLAM) [Concomitant]

REACTIONS (7)
  - ANXIETY [None]
  - CHEST PAIN [None]
  - DYSPNOEA [None]
  - INSOMNIA [None]
  - NIGHTMARE [None]
  - PANIC ATTACK [None]
  - TINNITUS [None]
